FAERS Safety Report 6405294-9 (Version None)
Quarter: 2009Q4

REPORT INFORMATION
  Report Type: 
  Country: None (occurrence: None)
  Receive Date: 20091016
  Receipt Date: 20091016
  Transmission Date: 20100525
  Serious: Yes (Other)
  Sender: FDA-Public Use
  Company Number: None

PATIENT
  Age: 61 Year
  Sex: Female
  Weight: 65.7716 kg

DRUGS (2)
  1. BENICAR [Suspect]
     Indication: BLOOD PRESSURE
     Dosage: 20 MG 1 X DAY
     Dates: start: 20091004
  2. BENICAR [Suspect]
     Indication: HYPOKALAEMIA
     Dosage: 20 MG 1 X DAY
     Dates: start: 20091004

REACTIONS (4)
  - ABASIA [None]
  - DIZZINESS [None]
  - NAUSEA [None]
  - VERTIGO [None]
